FAERS Safety Report 14603859 (Version 1)
Quarter: 2018Q1

REPORT INFORMATION
  Report Type: Spontaneous
  Country: US (occurrence: US)
  Receive Date: 20180306
  Receipt Date: 20180306
  Transmission Date: 20180509
  Serious: No
  Sender: FDA-Public Use
  Company Number: US-AEGERION PHARMACEUTICAL, INC-AEGR003426

PATIENT
  Age: 22 Year
  Sex: Female

DRUGS (2)
  1. MYALEPT [Suspect]
     Active Substance: METRELEPTIN
     Indication: LIPODYSTROPHY ACQUIRED
     Dosage: 3.75 MG (75 UNITS), QD
     Route: 058
     Dates: start: 201705
  2. MYALEPT [Suspect]
     Active Substance: METRELEPTIN
     Dosage: UNK (50 UNITS)
     Route: 058
     Dates: start: 201709

REACTIONS (3)
  - Abdominal pain [Recovered/Resolved]
  - Blood glucose increased [Recovering/Resolving]
  - Therapeutic response delayed [Recovering/Resolving]

NARRATIVE: CASE EVENT DATE: 201709
